FAERS Safety Report 10467851 (Version 1)
Quarter: 2014Q3

REPORT INFORMATION
  Report Type: Spontaneous
  Country: AU (occurrence: AU)
  Receive Date: 20140922
  Receipt Date: 20140922
  Transmission Date: 20150326
  Serious: Yes (Death, Hospitalization)
  Sender: FDA-Public Use
  Company Number: AU-MYLANLABS-2014M1004895

PATIENT

DRUGS (3)
  1. IBUPROFEN. [Suspect]
     Active Substance: IBUPROFEN
     Indication: TOOTHACHE
     Dosage: APPROXIMATELY TAKING EIGHT TABLETS DAILY
     Route: 065
  2. ESOMEPRAZOLE [Concomitant]
     Active Substance: ESOMEPRAZOLE
     Route: 065
  3. DOSULEPIN HYDROCHLORIDE [Concomitant]
     Active Substance: DOTHIEPIN HYDROCHLORIDE
     Dosage: 200MG DAILY
     Route: 065

REACTIONS (4)
  - Nephropathy toxic [Unknown]
  - Protein-losing gastroenteropathy [Fatal]
  - Renal tubular acidosis [Unknown]
  - Intestinal diaphragm disease [Fatal]
